FAERS Safety Report 5380911-3 (Version None)
Quarter: 2007Q3

REPORT INFORMATION
  Report Type: 
  Country: None (occurrence: None)
  Receive Date: 20070702
  Receipt Date: 20060905
  Transmission Date: 20080115
  Serious: Yes (Hospitalization)
  Sender: FDA-Public Use
  Company Number: SPV1-2006-00799

PATIENT
  Age: 20 Year
  Sex: Male

DRUGS (3)
  1. PENTASA [Suspect]
     Indication: COLITIS ULCERATIVE
     Dosage: ORAL
     Route: 048
     Dates: start: 20050701, end: 20060701
  2. PREDNISOLONE [Concomitant]
  3. TIQUIZIUM BROMIDE       (TIQUIZIUM BROMIDE) [Concomitant]

REACTIONS (1)
  - NEPHRITIS INTERSTITIAL [None]
